FAERS Safety Report 15566494 (Version 1)
Quarter: 2018Q4

REPORT INFORMATION
  Report Type: Spontaneous
  Country: US (occurrence: US)
  Receive Date: 20181030
  Receipt Date: 20181030
  Transmission Date: 20190205
  Serious: No
  Sender: FDA-Public Use
  Company Number: US-TEVA-815652ACC

PATIENT
  Sex: Male

DRUGS (1)
  1. MAYNE CARBIDOPA AND LEVODOPA [Suspect]
     Active Substance: CARBIDOPA\LEVODOPA
     Indication: PARKINSON^S DISEASE
     Dosage: 1DF = 25MG CARBIDOPA + 100MG LEVODOPA
     Dates: start: 201705, end: 201705

REACTIONS (3)
  - Product substitution issue [Unknown]
  - Nausea [Recovered/Resolved]
  - Feeling abnormal [Recovered/Resolved]

NARRATIVE: CASE EVENT DATE: 201705
